FAERS Safety Report 15645097 (Version 4)
Quarter: 2019Q3

REPORT INFORMATION
  Report Type: Spontaneous
  Country: JP (occurrence: JP)
  Receive Date: 20181121
  Receipt Date: 20190909
  Transmission Date: 20191004
  Serious: Yes (Hospitalization)
  Sender: FDA-Public Use
  Company Number: JP-EISAI MEDICAL RESEARCH-EC-2018-048064

PATIENT
  Age: 80 Year
  Sex: Male
  Weight: 60 kg

DRUGS (2)
  1. LENVIMA [Suspect]
     Active Substance: LENVATINIB
     Indication: HEPATOCELLULAR CARCINOMA
     Route: 048
     Dates: start: 20180820, end: 20181118
  2. LENVIMA [Suspect]
     Active Substance: LENVATINIB
     Dosage: 4 MG PER DAY, 6 DAYS ON/1 DAY OFF
     Route: 048

REACTIONS (3)
  - Shock haemorrhagic [Recovered/Resolved]
  - Duodenal ulcer haemorrhage [Recovering/Resolving]
  - Melaena [Recovered/Resolved]

NARRATIVE: CASE EVENT DATE: 20181118
